FAERS Safety Report 13270044 (Version 2)
Quarter: 2017Q1

REPORT INFORMATION
  Report Type: Spontaneous
  Country: NO (occurrence: NO)
  Receive Date: 20170224
  Receipt Date: 20170312
  Transmission Date: 20170428
  Serious: Yes (Death, Hospitalization, Other)
  Sender: FDA-Public Use
  Company Number: NO-MYLANLABS-2017M1012163

PATIENT

DRUGS (9)
  1. TRIMETOPRIM [Concomitant]
     Active Substance: TRIMETHOPRIM
     Indication: URINARY TRACT INFECTION
     Dates: start: 20170104, end: 20170108
  2. SIMVASTATIN. [Concomitant]
     Active Substance: SIMVASTATIN
  3. DEXAMETHASON [Concomitant]
     Active Substance: DEXAMETHASONE
  4. FURIX [Concomitant]
     Active Substance: FUROSEMIDE
     Indication: RALES
     Dosage: 20 MG, UNK
     Route: 042
     Dates: start: 20170108
  5. MAREVAN [Concomitant]
     Active Substance: WARFARIN SODIUM
  6. RAMIPRIL. [Concomitant]
     Active Substance: RAMIPRIL
  7. CALCIGRAN FORTE [Concomitant]
     Dosage: UNK
  8. METOPROLOL. [Concomitant]
     Active Substance: METOPROLOL
  9. LEPONEX [Suspect]
     Active Substance: CLOZAPINE
     Indication: PRODUCT USED FOR UNKNOWN INDICATION
     Dosage: 550 MG, UNK
     Route: 048
     Dates: start: 201612, end: 201612

REACTIONS (3)
  - Loss of consciousness [Recovered/Resolved]
  - Acute hepatic failure [Fatal]
  - Wrong patient received medication [Fatal]

NARRATIVE: CASE EVENT DATE: 201612
